FAERS Safety Report 8309777-6 (Version None)
Quarter: 2012Q2

REPORT INFORMATION
  Report Type: 
  Country: None (occurrence: None)
  Receive Date: 20120425
  Receipt Date: 20120417
  Transmission Date: 20120825
  Serious: Yes (Other)
  Sender: FDA-Public Use
  Company Number: PHHY2012BR012978

PATIENT
  Sex: Female

DRUGS (5)
  1. FORMOTEROL FUMARATE [Suspect]
     Indication: ASTHMA
     Dosage: UNK UKN, BID
     Dates: start: 20120201, end: 20120301
  2. DORFLEX [Concomitant]
     Indication: ABDOMINAL PAIN
     Dates: start: 20080101
  3. DICLOFENAC POTASSIUM [Concomitant]
     Indication: PAIN
     Dosage: 75 MG, PRN
     Dates: start: 20080101
  4. DICLOFENAC POTASSIUM [Concomitant]
     Dosage: 50 MG, PRN
  5. GINKGO BILOBA [Concomitant]

REACTIONS (9)
  - RESPIRATORY DISTRESS [None]
  - FATIGUE [None]
  - MALAISE [None]
  - COUGH [None]
  - DYSPNOEA [None]
  - CHEST DISCOMFORT [None]
  - DIZZINESS [None]
  - CHEST PAIN [None]
  - ARRHYTHMIA [None]
